FAERS Safety Report 5721278-8 (Version None)
Quarter: 2008Q2

REPORT INFORMATION
  Report Type: 
  Country: None (occurrence: None)
  Receive Date: 20080429
  Receipt Date: 20080418
  Transmission Date: 20081010
  Serious: Yes (Other)
  Sender: FDA-Public Use
  Company Number: US-JNJFOC-20080405783

PATIENT
  Sex: Female
  Weight: 88 kg

DRUGS (9)
  1. DURAGESIC-100 [Suspect]
     Indication: PAIN
     Route: 062
  2. FENTANYL TRANSDERMAL SYSTEM [Suspect]
     Indication: PAIN
     Route: 062
  3. ARANESP [Concomitant]
     Indication: ANAEMIA
     Route: 030
  4. ALLOPURINOL [Concomitant]
     Indication: GOUT
     Route: 048
  5. TIZANIDINE HCL [Concomitant]
     Indication: MUSCLE SPASMS
     Route: 048
  6. ATENOLOL [Concomitant]
     Indication: HYPERTENSION
     Route: 048
  7. FUROSEMIDE [Concomitant]
     Indication: DIURETIC THERAPY
     Route: 048
  8. HYDROCODONE BITARTRATE [Concomitant]
     Indication: PAIN
     Route: 048
  9. SPIRONOLACTONE [Concomitant]
     Indication: DIURETIC THERAPY
     Route: 048

REACTIONS (5)
  - ARTHRALGIA [None]
  - BLOOD CHOLESTEROL INCREASED [None]
  - DIABETES MELLITUS [None]
  - DRUG DOSE OMISSION [None]
  - DRUG INEFFECTIVE [None]
